FAERS Safety Report 5577864-1 (Version None)
Quarter: 2007Q4

REPORT INFORMATION
  Report Type: 
  Country: None (occurrence: None)
  Receive Date: 20071231
  Receipt Date: 20071219
  Transmission Date: 20080405
  Serious: Yes (Death)
  Sender: FDA-Public Use
  Company Number: JP-SANOFI-SYNTHELABO-A01200713985

PATIENT
  Age: 82 Year
  Sex: Female
  Weight: 43 kg

DRUGS (10)
  1. DIGILANOGEN C [Concomitant]
     Route: 041
     Dates: start: 20071128, end: 20071129
  2. KN-2B [Concomitant]
     Route: 041
     Dates: start: 20071125, end: 20071129
  3. BUSCOPAN [Concomitant]
     Route: 030
     Dates: start: 20071124, end: 20071128
  4. PRIMPERAN INJ [Concomitant]
     Route: 041
     Dates: start: 20071124, end: 20071128
  5. SINSERON [Concomitant]
     Route: 048
     Dates: start: 20071119, end: 20071121
  6. ISOVORIN [Concomitant]
     Dosage: 125 MG
     Route: 041
     Dates: start: 20071119, end: 20071120
  7. ELPLAT [Suspect]
     Indication: RECTAL CANCER
     Dosage: 100 MG/BODY=74.1 MG/M2
     Route: 042
     Dates: start: 20071119, end: 20071119
  8. VASOLAN [Concomitant]
     Route: 041
     Dates: start: 20071128, end: 20071129
  9. PANSPORIN [Concomitant]
     Route: 041
     Dates: start: 20071125, end: 20071129
  10. FLUOROURACIL [Suspect]
     Dosage: 500 M/GBODY=370.4 MG/M2 BOLUS THEN 750 MG/BODY=555.6 MG/M2 INFUSION D1-2
     Route: 042
     Dates: start: 20071119, end: 20071120

REACTIONS (10)
  - BLOOD PRESSURE DECREASED [None]
  - DEHYDRATION [None]
  - DEPRESSED LEVEL OF CONSCIOUSNESS [None]
  - DIARRHOEA [None]
  - LEUKOPENIA [None]
  - MULTI-ORGAN FAILURE [None]
  - RENAL FAILURE ACUTE [None]
  - STEVENS-JOHNSON SYNDROME [None]
  - TACHYCARDIA [None]
  - THROMBOCYTOPENIA [None]
